FAERS Safety Report 18119456 (Version 1)
Quarter: 2020Q3

REPORT INFORMATION
  Report Type: Spontaneous
  Country: US (occurrence: US)
  Receive Date: 20200806
  Receipt Date: 20200806
  Transmission Date: 20201103
  Serious: No
  Sender: FDA-Public Use
  Company Number: None

PATIENT
  Age: 25 Year
  Sex: Female
  Weight: 144 kg

DRUGS (5)
  1. BUPROPION SR 150MG TABLET [Suspect]
     Active Substance: BUPROPION HYDROCHLORIDE
     Indication: BINGE EATING
     Route: 048
     Dates: start: 20200415
  2. BUPROPION/NALTREXONE [Concomitant]
     Active Substance: BUPROPION HYDROCHLORIDE\NALTREXONE HYDROCHLORIDE
  3. NALTREXONE 50MG TABLET [Suspect]
     Active Substance: NALTREXONE
  4. JUNEL [Concomitant]
     Active Substance: ETHINYL ESTRADIOL\NORETHINDRONE ACETATE
  5. ONE A DAY WOMEN^S MULTIVITAMIN [Concomitant]

REACTIONS (3)
  - Menorrhagia [None]
  - Dysmenorrhoea [None]
  - Condition aggravated [None]

NARRATIVE: CASE EVENT DATE: 20200805
